FAERS Safety Report 4299542-1 (Version None)
Quarter: 2004Q1

REPORT INFORMATION
  Report Type: 
  Country: None (occurrence: None)
  Receive Date: 20040217
  Receipt Date: 20040130
  Transmission Date: 20041129
  Serious: Yes (Death, Life-Threatening, Hospitalization, Other)
  Sender: FDA-Public Use
  Company Number: 2003120418

PATIENT
  Age: 40 Year
  Sex: Female

DRUGS (13)
  1. GEODON [Suspect]
     Indication: PSYCHOTIC DISORDER
     Dosage: 40 MG (BID, PRN), INTRAMUSCULAR
     Route: 030
  2. GEODON [Suspect]
     Indication: SELF-INJURIOUS IDEATION
     Dosage: 40 MG (BID, PRN), INTRAMUSCULAR
     Route: 030
  3. CHLORPROMAZINE [Suspect]
     Indication: AGITATION
     Dosage: INTRAMUSCULAR
     Route: 030
  4. CHLORPROMAZINE [Suspect]
     Indication: SELF-INJURIOUS IDEATION
     Dosage: INTRAMUSCULAR
     Route: 030
  5. LORAZEPAM [Concomitant]
  6. INSULIN LISPRO (INSULIN LISPRO) [Concomitant]
  7. ATORVASTATIN CALCIUM [Concomitant]
  8. PIOGLITAZONE HCL [Concomitant]
  9. RISPERIDONE [Concomitant]
  10. ARIPIPRAZOLE (ARIPIPRAZOLE) [Concomitant]
  11. BUPROPION HYDROCHLORIDE [Concomitant]
  12. ESCITALOPRAM (ESCITALOPRAM) [Concomitant]
  13. BENZATROPINE MESILATE (BENZATROPINE MESILATE) [Concomitant]

REACTIONS (3)
  - AGITATION [None]
  - ARRHYTHMIA [None]
  - SLEEP APNOEA SYNDROME [None]
